FAERS Safety Report 9704399 (Version 1)
Quarter: 2013Q4

REPORT INFORMATION
  Report Type: Spontaneous
  Country: US (occurrence: US)
  Receive Date: 20131122
  Receipt Date: 20131122
  Transmission Date: 20140711
  Serious: No
  Sender: FDA-Public Use
  Company Number: US-MYLANLABS-2013S1018235

PATIENT
  Age: 41 Year
  Sex: Female

DRUGS (1)
  1. CLONAZEPAM TABLETS, USP [Suspect]
     Route: 048
     Dates: start: 20130803, end: 20130803

REACTIONS (2)
  - Hypersensitivity [Not Recovered/Not Resolved]
  - Accidental exposure to product [Recovered/Resolved]
